FAERS Safety Report 7445421-8 (Version None)
Quarter: 2011Q2

REPORT INFORMATION
  Report Type: 
  Country: None (occurrence: None)
  Receive Date: 20110429
  Receipt Date: 20110426
  Transmission Date: 20111010
  Serious: Yes (Death, Hospitalization)
  Sender: FDA-Public Use
  Company Number: PHHY2011BR35439

PATIENT
  Age: 78 Year
  Sex: Female

DRUGS (2)
  1. EXELON [Suspect]
     Dosage: 18MG/10CM2
     Route: 062
  2. EXELON [Suspect]
     Dosage: 9MG/5CM2
     Route: 062

REACTIONS (3)
  - CONVULSION [None]
  - PULMONARY EMBOLISM [None]
  - RESPIRATORY ARREST [None]
